FAERS Safety Report 4462648-8 (Version None)
Quarter: 2004Q3

REPORT INFORMATION
  Report Type: 
  Country: None (occurrence: None)
  Receive Date: 20040929
  Receipt Date: 20040910
  Transmission Date: 20050211
  Serious: Yes (Hospitalization)
  Sender: FDA-Public Use
  Company Number: DSA_70401_2004

PATIENT
  Sex: Female

DRUGS (2)
  1. AZASAN [Suspect]
     Dosage: DF
  2. AVONEX [Concomitant]

REACTIONS (1)
  - PANCREATITIS [None]
